FAERS Safety Report 7403764-8 (Version None)
Quarter: 2011Q2

REPORT INFORMATION
  Report Type: 
  Country: None (occurrence: None)
  Receive Date: 20110408
  Receipt Date: 20110405
  Transmission Date: 20111010
  Serious: Yes (Hospitalization)
  Sender: FDA-Public Use
  Company Number: US-BRISTOL-MYERS SQUIBB COMPANY-15654809

PATIENT
  Age: 62 Year
  Sex: Male
  Weight: 67 kg

DRUGS (18)
  1. ASPIRIN [Concomitant]
     Route: 048
  2. ENULOSE [Concomitant]
     Dosage: EVERY 2HRS 10GM/15ML
     Route: 048
  3. OMEPRAZOLE [Concomitant]
     Route: 048
  4. ZOCOR [Concomitant]
     Route: 048
  5. PEMETREXED DISODIUM [Suspect]
     Indication: NON-SMALL CELL LUNG CANCER
     Dosage: RECENT INF:25MAR2011; NO OF INF:2
     Route: 042
     Dates: start: 20110228, end: 20110325
  6. OXYGEN [Concomitant]
     Indication: DYSPNOEA
     Route: 055
  7. DEXAMETHASONE [Concomitant]
     Dosage: TAKE 2 DAY BEFIRE AND AFTER ALIMTA
     Route: 048
  8. VITAMIN B-12 [Concomitant]
     Route: 048
  9. FOLIC ACID [Concomitant]
     Route: 048
  10. HYDREA [Concomitant]
     Dosage: 2 CAPS,SU,MO,WE,FRI,SAT,1 CAP TUES/THUR
     Route: 048
  11. PROCHLORPERAZINE MALEATE [Concomitant]
     Dosage: EVERY 4-6HRS
     Route: 048
  12. LEXAPRO [Concomitant]
     Route: 048
  13. CETUXIMAB [Suspect]
     Indication: NON-SMALL CELL LUNG CANCER
     Dosage: NO OF INF:4
     Route: 042
     Dates: start: 20110228, end: 20110325
  14. CISPLATIN [Suspect]
     Indication: NON-SMALL CELL LUNG CANCER
     Dosage: NO OF INF:2
     Route: 042
     Dates: start: 20110228, end: 20110325
  15. MAGNESIUM OXIDE [Concomitant]
     Route: 048
  16. MIRTAZAPINE [Concomitant]
     Dosage: 1 IN 1 HS AT BEDTIME
     Route: 048
  17. MEGACE [Concomitant]
     Dosage: 400MG/10ML
     Route: 048
  18. NEULASTA [Concomitant]

REACTIONS (3)
  - LEUKOCYTOSIS [None]
  - HYPOTENSION [None]
  - DIARRHOEA [None]
